FAERS Safety Report 9965151 (Version 1)
Quarter: 2014Q1

REPORT INFORMATION
  Report Type: Spontaneous
  Country: US (occurrence: US)
  Receive Date: 20140305
  Receipt Date: 20140305
  Transmission Date: 20141002
  Serious: No
  Sender: FDA-Public Use
  Company Number: US-ABBVIE-13P-163-1128195-00

PATIENT
  Age: 41 Year
  Sex: Female
  Weight: 108.05 kg

DRUGS (7)
  1. HUMIRA [Suspect]
     Indication: CROHN^S DISEASE
     Dosage: UNKNOWN IF LOADING DOSE WAS USED
     Route: 058
     Dates: start: 2007
  2. HEPARIN [Concomitant]
     Indication: IN VITRO FERTILISATION
  3. ESTRACE [Concomitant]
     Indication: IN VITRO FERTILISATION
  4. PROGESTERONE [Concomitant]
     Indication: IN VITRO FERTILISATION
  5. ASPIRIN [Concomitant]
     Indication: IN VITRO FERTILISATION
  6. PRENATAL VITAMINS [Concomitant]
     Indication: PREGNANCY
  7. B12 [Concomitant]
     Indication: VITAMIN B COMPLEX DEFICIENCY
     Route: 030

REACTIONS (1)
  - Gestational diabetes [Not Recovered/Not Resolved]
